FAERS Safety Report 5510747-1 (Version None)
Quarter: 2007Q4

REPORT INFORMATION
  Report Type: 
  Country: None (occurrence: None)
  Receive Date: 20071108
  Receipt Date: 20071102
  Transmission Date: 20080405
  Serious: Yes (Other)
  Sender: FDA-Public Use
  Company Number: B0487392A

PATIENT
  Age: 45 Year
  Sex: Female

DRUGS (1)
  1. SEROXAT [Suspect]
     Indication: PANIC ATTACK
     Dosage: 20MG PER DAY
     Route: 048
     Dates: start: 20040101, end: 20070901

REACTIONS (8)
  - AGGRESSION [None]
  - ALOPECIA [None]
  - CRYING [None]
  - DIZZINESS [None]
  - PARAESTHESIA [None]
  - RASH [None]
  - VOMITING [None]
  - WITHDRAWAL SYNDROME [None]
